FAERS Safety Report 19080378 (Version 2)
Quarter: 2021Q2

REPORT INFORMATION
  Report Type: Spontaneous
  Country: US (occurrence: US)
  Receive Date: 20210401
  Receipt Date: 20210413
  Transmission Date: 20210717
  Serious: No
  Sender: FDA-Public Use
  Company Number: US-LUPIN PHARMACEUTICALS INC.-2021-03925

PATIENT
  Sex: Female
  Weight: 52.15 kg

DRUGS (5)
  1. TEMAZEPAM CAPSULES, USP, 15 MG [Suspect]
     Active Substance: TEMAZEPAM
     Indication: SLEEP DISORDER
     Dosage: UNK
     Route: 065
     Dates: start: 201912
  2. SYNTHROID [Concomitant]
     Active Substance: LEVOTHYROXINE SODIUM
     Indication: AUTOIMMUNE THYROIDITIS
     Dosage: 1 DOSAGE FORM, QD
     Route: 065
  3. TEMAZEPAM CAPSULES, USP, 7.5 MG [Suspect]
     Active Substance: TEMAZEPAM
     Indication: SLEEP DISORDER
     Dosage: UNK
     Route: 065
  4. TEMAZEPAM CAPSULES, USP, 7.5 MG [Suspect]
     Active Substance: TEMAZEPAM
     Dosage: UNK (3 DAYS AGO)
     Route: 065
     Dates: end: 202103
  5. AMLODIPINE BESYLATE. [Concomitant]
     Active Substance: AMLODIPINE BESYLATE
     Indication: BLOOD PRESSURE ABNORMAL
     Dosage: 2.5 MILLIGRAM, QD, EVERY MORNING
     Route: 065

REACTIONS (2)
  - Disorientation [Unknown]
  - Fatigue [Unknown]
